FAERS Safety Report 21905077 (Version 1)
Quarter: 2023Q1

REPORT INFORMATION
  Report Type: Spontaneous
  Country: US (occurrence: US)
  Receive Date: 20230124
  Receipt Date: 20230124
  Transmission Date: 20230418
  Serious: Yes (Other)
  Sender: FDA-Public Use
  Company Number: US-drreddys-SPO/USA/23/0159970

PATIENT
  Age: 14 Year
  Sex: Female

DRUGS (3)
  1. ACCUTANE [Suspect]
     Active Substance: ISOTRETINOIN
     Indication: Acne
     Dosage: RMA ISSUE DATE 08 DECEMBER 2022 03:22:58 PM, 10 NOVEMBER 2022 04:29:44 PM
  2. ACCUTANE [Suspect]
     Active Substance: ISOTRETINOIN
     Dosage: RMA ISSUE DATE 06 OCTOBER 2022 11:50:09 AM, 28 JULY 2022 04:07:13 PM
  3. ACCUTANE [Suspect]
     Active Substance: ISOTRETINOIN
     Dosage: RMA ISSUE DATE 01 SEPTEMBER 2022 04:33:36 PM

REACTIONS (1)
  - Panic reaction [Unknown]
